FAERS Safety Report 6541066-2 (Version None)
Quarter: 2010Q1

REPORT INFORMATION
  Report Type: 
  Country: None (occurrence: None)
  Receive Date: 20100118
  Receipt Date: 20100108
  Transmission Date: 20100710
  Serious: Yes (Hospitalization)
  Sender: FDA-Public Use
  Company Number: GXKR2010GB00601

PATIENT
  Age: 81 Year
  Sex: Female
  Weight: 53.1 kg

DRUGS (3)
  1. DICLOFENAC (NGX) [Suspect]
     Indication: ARTHRITIS
     Dosage: 75 MG, UNK
     Route: 048
     Dates: start: 20040101, end: 20071101
  2. ARICEPT [Suspect]
     Dosage: 10 MG, QD
     Route: 048
     Dates: start: 20060201, end: 20080212
  3. OMEPRAZOLE [Concomitant]

REACTIONS (6)
  - BARRETT'S OESOPHAGUS [None]
  - EROSIVE OESOPHAGITIS [None]
  - FOOD AVERSION [None]
  - MELAENA [None]
  - OESOPHAGEAL ULCER [None]
  - REFLUX OESOPHAGITIS [None]
